FAERS Safety Report 11693765 (Version 2)
Quarter: 2015Q4

REPORT INFORMATION
  Report Type: Spontaneous
  Country: US (occurrence: US)
  Receive Date: 20151103
  Receipt Date: 20151123
  Transmission Date: 20160304
  Serious: No
  Sender: FDA-Public Use
  Company Number: US-ACTELION PHARMACEUTICALS US, INC.-A-US2015-126617

PATIENT
  Age: 57 Year
  Sex: Female

DRUGS (2)
  1. VELETRI [Suspect]
     Active Substance: EPOPROSTENOL
     Indication: PULMONARY HYPERTENSION
     Dosage: 27.41 NG/KG, PER MIN
     Route: 042
     Dates: start: 20140903
  2. LETAIRIS [Concomitant]
     Active Substance: AMBRISENTAN

REACTIONS (6)
  - Raynaud^s phenomenon [Unknown]
  - Diarrhoea [Unknown]
  - Pain in jaw [Unknown]
  - Nasopharyngitis [Unknown]
  - Dyspnoea [Unknown]
  - Localised infection [Unknown]
